FAERS Safety Report 6534630-8 (Version None)
Quarter: 2010Q1

REPORT INFORMATION
  Report Type: 
  Country: None (occurrence: None)
  Receive Date: 20100112
  Receipt Date: 20100107
  Transmission Date: 20100710
  Serious: Yes (Other)
  Sender: FDA-Public Use
  Company Number: B0624709A

PATIENT
  Sex: Male

DRUGS (1)
  1. FLONASE [Suspect]
     Route: 045
     Dates: start: 20091101, end: 20091101

REACTIONS (4)
  - BONE PAIN [None]
  - BORDERLINE GLAUCOMA [None]
  - VISION BLURRED [None]
  - VISUAL IMPAIRMENT [None]
